FAERS Safety Report 12889533 (Version 1)
Quarter: 2016Q4

REPORT INFORMATION
  Report Type: Spontaneous
  Country: US (occurrence: US)
  Receive Date: 20161027
  Receipt Date: 20161027
  Transmission Date: 20170207
  Serious: No
  Sender: FDA-Public Use
  Company Number: US-PFIZER INC-2016499330

PATIENT
  Sex: Male

DRUGS (1)
  1. LYRICA [Suspect]
     Active Substance: PREGABALIN

REACTIONS (3)
  - Pain [Unknown]
  - Insomnia [Unknown]
  - Withdrawal syndrome [Unknown]
